FAERS Safety Report 26179557 (Version 1)
Quarter: 2025Q4

REPORT INFORMATION
  Report Type: Spontaneous
  Country: CN (occurrence: CN)
  Receive Date: 20251219
  Receipt Date: 20251219
  Transmission Date: 20260118
  Serious: Yes (Other)
  Sender: RANBAXY
  Company Number: CN-SUN PHARMACEUTICAL INDUSTRIES LTD-2025R1-542821

PATIENT
  Age: 52 Year
  Sex: Male

DRUGS (3)
  1. OSELTAMIVIR [Suspect]
     Active Substance: OSELTAMIVIR
     Indication: Antibiotic prophylaxis
     Dosage: 30 MILLIGRAM, QD
     Route: 065
  2. CEFOPERAZONE\SULBACTAM [Suspect]
     Active Substance: CEFOPERAZONE\SULBACTAM
     Indication: Antibiotic prophylaxis
     Dosage: 1.5 GRAM, BID
     Route: 065
  3. SULFAMETHOXAZOLE\TRIMETHOPRIM [Suspect]
     Active Substance: SULFAMETHOXAZOLE\TRIMETHOPRIM
     Indication: Pneumocystis jirovecii infection
     Dosage: 160 MILLIGRAM, TID
     Route: 065

REACTIONS (1)
  - Disease progression [Unknown]
